FAERS Safety Report 16613692 (Version 1)
Quarter: 2019Q3

REPORT INFORMATION
  Report Type: Spontaneous
  Country: DE (occurrence: DE)
  Receive Date: 20190723
  Receipt Date: 20190723
  Transmission Date: 20191004
  Serious: Yes (Other)
  Sender: FDA-Public Use
  Company Number: DE-SUN PHARMACEUTICAL INDUSTRIES LTD-2019RR-214552

PATIENT
  Age: 82 Year
  Sex: Male
  Weight: 87 kg

DRUGS (4)
  1. CIPROFLOXACIN. [Suspect]
     Active Substance: CIPROFLOXACIN
     Indication: ENDODONTIC PROCEDURE
     Dosage: ()
     Route: 065
     Dates: start: 201905
  2. CIPROFLOXACIN. [Suspect]
     Active Substance: CIPROFLOXACIN
     Indication: ENDODONTIC PROCEDURE
     Dosage: UNK
     Route: 065
     Dates: start: 201707
  3. CIPROFLOXACIN. [Suspect]
     Active Substance: CIPROFLOXACIN
     Dosage: UNK
     Route: 065
     Dates: start: 201904
  4. CIPROFLOXACIN. [Suspect]
     Active Substance: CIPROFLOXACIN
     Dosage: UNK
     Route: 065
     Dates: start: 201901

REACTIONS (10)
  - Muscular weakness [Unknown]
  - Hypotonia [Recovering/Resolving]
  - Fatigue [Unknown]
  - Fatigue [Recovering/Resolving]
  - Myalgia [Unknown]
  - Eyelid irritation [Unknown]
  - Muscle rupture [Unknown]
  - Arthralgia [Not Recovered/Not Resolved]
  - Muscle spasms [Unknown]
  - Gait disturbance [Recovering/Resolving]

NARRATIVE: CASE EVENT DATE: 2017
